FAERS Safety Report 7213872-2 (Version None)
Quarter: 2011Q1

REPORT INFORMATION
  Report Type: 
  Country: None (occurrence: None)
  Receive Date: 20110106
  Receipt Date: 20101224
  Transmission Date: 20110831
  Serious: Yes (Death, Hospitalization)
  Sender: FDA-Public Use
  Company Number: JP-ELI_LILLY_AND_COMPANY-JP201012005983

PATIENT
  Age: 62 Year
  Sex: Male

DRUGS (2)
  1. CISPLATIN [Concomitant]
     Indication: NON-SMALL CELL LUNG CANCER
     Dosage: 64 MG/M2, OTHER
     Route: 042
     Dates: start: 20090826, end: 20091007
  2. GEMCITABINE HCL [Suspect]
     Indication: NON-SMALL CELL LUNG CANCER
     Dosage: 1000 MG/M2, OTHER
     Route: 042
     Dates: start: 20090826, end: 20091007

REACTIONS (3)
  - NEOPLASM MALIGNANT [None]
  - DECREASED APPETITE [None]
  - RENAL IMPAIRMENT [None]
